FAERS Safety Report 18462923 (Version 1)
Quarter: 2020Q4

REPORT INFORMATION
  Report Type: Other
  Country: GB (occurrence: GB)
  Receive Date: 20201104
  Receipt Date: 20201104
  Transmission Date: 20210114
  Serious: No
  Sender: FDA-Public Use
  Company Number: GB-LUPIN PHARMACEUTICALS INC.-2020-03056

PATIENT
  Age: 64 Year
  Sex: Male
  Weight: 107 kg

DRUGS (9)
  1. LANSOPRAZOLE. [Concomitant]
     Active Substance: LANSOPRAZOLE
     Indication: ILL-DEFINED DISORDER
     Dosage: 1 DOSAGE FORM, EACH MORNING
     Route: 065
     Dates: start: 20190327
  2. CLOPIDOGREL [Concomitant]
     Active Substance: CLOPIDOGREL BISULFATE
     Indication: ILL-DEFINED DISORDER
     Dosage: 1 DOSAGE FORM, QD
     Route: 065
     Dates: start: 20190327
  3. SIMVASTATIN. [Suspect]
     Active Substance: SIMVASTATIN
     Indication: PRODUCT USED FOR UNKNOWN INDICATION
     Dosage: 1 DOSAGE FORM, QD (AT NIGHT)
     Route: 065
     Dates: start: 20190327
  4. SPIOLTO RESPIMAT [Concomitant]
     Active Substance: OLODATEROL HYDROCHLORIDE\TIOTROPIUM BROMIDE MONOHYDRATE
     Indication: ILL-DEFINED DISORDER
     Dosage: 2 DOSAGE FORM, QD (TWO PUFFS ONCE DAILY)
     Route: 065
     Dates: start: 20190327
  5. BISOPROLOL [Concomitant]
     Active Substance: BISOPROLOL
     Indication: ILL-DEFINED DISORDER
     Dosage: 1 DOSAGE FORM, QD
     Route: 065
     Dates: start: 20190327
  6. SALBUTAMOL [Concomitant]
     Active Substance: ALBUTEROL
     Indication: ILL-DEFINED DISORDER
     Dosage: INHALE ONE OR TWO DOSES UP TO FOUR TIMES A DAY
     Dates: start: 20200324
  7. BUMETANIDE. [Concomitant]
     Active Substance: BUMETANIDE
     Indication: ILL-DEFINED DISORDER
     Dosage: 1 DOSAGE FORM, EACH MORNING
     Route: 065
     Dates: start: 20190327
  8. LOSARTAN. [Concomitant]
     Active Substance: LOSARTAN
     Indication: ILL-DEFINED DISORDER
     Dosage: 1 DOSAGE FORM, QD
     Route: 065
     Dates: start: 20190327
  9. QVAR [Concomitant]
     Active Substance: BECLOMETHASONE DIPROPIONATE
     Indication: ILL-DEFINED DISORDER
     Dosage: 2 DOSAGE FORM, BID
     Dates: start: 20200520

REACTIONS (1)
  - Anger [Recovered/Resolved]

NARRATIVE: CASE EVENT DATE: 20200615
